FAERS Safety Report 18716709 (Version 1)
Quarter: 2021Q1

REPORT INFORMATION
  Report Type: Spontaneous
  Country: US (occurrence: US)
  Receive Date: 20210108
  Receipt Date: 20210108
  Transmission Date: 20210419
  Serious: No
  Sender: FDA-Public Use
  Company Number: US-JNJFOC-20201253879

PATIENT

DRUGS (4)
  1. CLOBETASOL [Concomitant]
     Active Substance: CLOBETASOL
     Indication: PRODUCT USED FOR UNKNOWN INDICATION
     Dosage: CLOBETASOL (TEMOVATE SCALP) 0.05% TOPICAL SOLN (STARTED 9/4/2020) APPLY TO SCALP DAILY
     Route: 061
     Dates: start: 20200904
  2. FINASTERIDE. [Concomitant]
     Active Substance: FINASTERIDE
     Indication: PRODUCT USED FOR UNKNOWN INDICATION
     Dosage: (PROSCAR) 5MG TAB (STARTED 9/4/2020) TAKE 1/2 TAB BY MOUTH DAILY
     Route: 048
     Dates: start: 20200904
  3. ARMOUR THYROID [Concomitant]
     Active Substance: THYROID, PORCINE
     Indication: PRODUCT USED FOR UNKNOWN INDICATION
     Route: 065
  4. WOMENS ROGAINE UNSCENTED [Suspect]
     Active Substance: MINOXIDIL
     Indication: ALOPECIA
     Route: 061
     Dates: start: 20201001

REACTIONS (1)
  - Drug ineffective [Unknown]
